FAERS Safety Report 16736749 (Version 2)
Quarter: 2019Q3

REPORT INFORMATION
  Report Type: Spontaneous
  Country: US (occurrence: US)
  Receive Date: 20190823
  Receipt Date: 20190909
  Transmission Date: 20191005
  Serious: Yes (Other)
  Sender: FDA-Public Use
  Company Number: US-PFIZER INC-2018421824

PATIENT
  Age: 39 Year
  Sex: Female

DRUGS (2)
  1. LYRICA [Suspect]
     Active Substance: PREGABALIN
     Dosage: 200 MG, DAILY (1 CAP IN AM 1 CAP IN AFTERNOON AND 2 CAPS IN PM)
     Route: 048
  2. LYRICA [Suspect]
     Active Substance: PREGABALIN
     Indication: FIBROMYALGIA
     Dosage: 200 MG, DAILY (1 CAP IN AM 2 CAP IN AFTERNOON 1 CAP IN PM)
     Route: 048

REACTIONS (2)
  - Malaise [Unknown]
  - Cerebrovascular accident [Unknown]
